FAERS Safety Report 19174543 (Version 3)
Quarter: 2021Q3

REPORT INFORMATION
  Report Type: Report from Study
  Country: CN (occurrence: CN)
  Receive Date: 20210423
  Receipt Date: 20210809
  Transmission Date: 20211014
  Serious: Yes (Other)
  Sender: FDA-Public Use
  Company Number: NVSC2020CN187599

PATIENT
  Age: 53 Year
  Sex: Female

DRUGS (24)
  1. ENTRESTO [Suspect]
     Active Substance: SACUBITRIL\VALSARTAN
     Dosage: 50 MG, UNKNOWN
     Route: 048
     Dates: start: 20200403, end: 20200827
  2. AMIODARONE [Concomitant]
     Active Substance: AMIODARONE
     Dosage: 0.10 G
     Route: 048
     Dates: start: 20191105, end: 20191202
  3. LEVOTHYROXINE SODIUM. [Concomitant]
     Active Substance: LEVOTHYROXINE SODIUM
     Indication: PRE-EXISTING DISEASE
     Dosage: 50 UG
     Route: 048
     Dates: start: 20191014, end: 20191027
  4. TORSEMIDE. [Concomitant]
     Active Substance: TORSEMIDE
     Dosage: 10 MG,
     Route: 048
     Dates: start: 20200131, end: 20200219
  5. ENTRESTO [Suspect]
     Active Substance: SACUBITRIL\VALSARTAN
     Dosage: 25 MG, UNKNOWN
     Route: 048
     Dates: start: 20200828
  6. TORSEMIDE. [Concomitant]
     Active Substance: TORSEMIDE
     Indication: CARDIAC FAILURE
     Dosage: 10 MG,
     Route: 048
     Dates: start: 20190920, end: 20191124
  7. MELITRACEN [Concomitant]
     Active Substance: MELITRACEN
     Indication: CARDIAC FAILURE
     Dosage: 1 DF
     Route: 048
     Dates: start: 20200228, end: 20200328
  8. AMIODARONE [Concomitant]
     Active Substance: AMIODARONE
     Indication: CARDIAC FAILURE
     Dosage: 0.10 G
     Route: 048
     Dates: start: 20191014, end: 20191027
  9. TORSEMIDE. [Concomitant]
     Active Substance: TORSEMIDE
     Dosage: 10 MG
     Route: 048
     Dates: start: 20200228, end: 20200318
  10. TORSEMIDE. [Concomitant]
     Active Substance: TORSEMIDE
     Dosage: 10 MG
     Route: 048
     Dates: start: 20200529, end: 20200617
  11. TORSEMIDE. [Concomitant]
     Active Substance: TORSEMIDE
     Dosage: 10 MG
     Route: 048
     Dates: start: 20200403, end: 20200422
  12. DIGOXIN. [Concomitant]
     Active Substance: DIGOXIN
     Indication: CARDIAC FAILURE
     Dosage: 0.125 MG
     Route: 048
     Dates: start: 20190920, end: 20200926
  13. FLUPENTIXOL [Concomitant]
     Active Substance: FLUPENTIXOL
     Indication: ILL-DEFINED DISORDER
  14. TRIMETAZIDINE DIHYDROCHLORIDE [Concomitant]
     Active Substance: TRIMETAZIDINE DIHYDROCHLORIDE
     Indication: CARDIAC FAILURE
     Dosage: 35 MG, UNKNOWN
     Route: 048
     Dates: start: 20190920, end: 20191025
  15. FLUPENTIXOL [Concomitant]
     Active Substance: FLUPENTIXOL
     Indication: CARDIAC FAILURE
     Dosage: 1 DF
     Route: 048
     Dates: start: 20200228, end: 20200328
  16. EUCALYPTOL [Concomitant]
     Active Substance: EUCALYPTOL
     Indication: PRE-EXISTING DISEASE
     Dosage: 0.3 G
     Route: 048
     Dates: start: 20190920, end: 20190926
  17. TORSEMIDE. [Concomitant]
     Active Substance: TORSEMIDE
     Dosage: 10 MG
     Route: 048
     Dates: start: 20191206, end: 20191225
  18. SPIRONOLACTONE. [Concomitant]
     Active Substance: SPIRONOLACTONE
     Indication: CARDIAC FAILURE
     Dosage: 20 MG, UNKNOWN
     Route: 048
     Dates: start: 20190920, end: 20200627
  19. METOPROLOL SUCCINATE. [Concomitant]
     Active Substance: METOPROLOL SUCCINATE
     Indication: CARDIAC FAILURE
     Dosage: 23.75 MG
     Route: 048
     Dates: start: 20190927, end: 20191017
  20. MELITRACEN [Concomitant]
     Active Substance: MELITRACEN
     Indication: SEDATION
  21. ENTRESTO [Suspect]
     Active Substance: SACUBITRIL\VALSARTAN
     Indication: CARDIAC FAILURE CHRONIC
     Dosage: 25 MG, UNKNOWN
     Route: 048
     Dates: start: 20190925, end: 20200402
  22. WARFARIN SODIUM. [Concomitant]
     Active Substance: WARFARIN SODIUM
     Indication: CARDIAC FAILURE
     Dosage: 2.25 MG, UNKNOWN
     Route: 048
     Dates: start: 20190920, end: 20200926
  23. FLUPENTIXOL [Concomitant]
     Active Substance: FLUPENTIXOL
     Indication: SEDATION
     Dosage: 1 DF,1 TABLET
     Route: 048
     Dates: start: 20200529, end: 20200607
  24. MELITRACEN [Concomitant]
     Active Substance: MELITRACEN
     Indication: ILL-DEFINED DISORDER

REACTIONS (8)
  - Fatigue [Recovered/Resolved]
  - Syncope [Recovered/Resolved]
  - Epistaxis [Recovered/Resolved]
  - Wrong technique in product usage process [Recovered/Resolved]
  - Vulvovaginal pruritus [Recovered/Resolved]
  - Wrong technique in product usage process [Unknown]
  - Chronic sinusitis [Recovered/Resolved]
  - Vaginal infection [Recovered/Resolved]

NARRATIVE: CASE EVENT DATE: 20190925
